FAERS Safety Report 22536668 (Version 1)
Quarter: 2023Q2

REPORT INFORMATION
  Report Type: Spontaneous
  Country: US (occurrence: US)
  Receive Date: 20230608
  Receipt Date: 20230608
  Transmission Date: 20230722
  Serious: Yes (Other)
  Sender: FDA-Public Use
  Company Number: US-SUN PHARMACEUTICAL INDUSTRIES LTD-2023R1-393312

PATIENT
  Age: 84 Year
  Sex: Female

DRUGS (3)
  1. MESALAMINE [Suspect]
     Active Substance: MESALAMINE
     Indication: Colitis microscopic
     Dosage: UNK
     Route: 065
  2. CHOLESTYRAMINE [Concomitant]
     Active Substance: CHOLESTYRAMINE
     Indication: Colitis microscopic
     Route: 065
  3. ELUXADOLINE [Concomitant]
     Active Substance: ELUXADOLINE
     Indication: Colitis microscopic
     Route: 065

REACTIONS (1)
  - Treatment failure [Unknown]
